FAERS Safety Report 6860132-5 (Version None)
Quarter: 2010Q3

REPORT INFORMATION
  Report Type: 
  Country: None (occurrence: None)
  Receive Date: 20100720
  Receipt Date: 20100715
  Transmission Date: 20110219
  Serious: Yes (Other)
  Sender: FDA-Public Use
  Company Number: CA-PFIZER INC-2010073440

PATIENT
  Age: 53 Year
  Sex: Female
  Weight: 63.946 kg

DRUGS (16)
  1. DETROL LA [Suspect]
     Indication: HYPERTONIC BLADDER
     Dosage: 4 MG, 1X/DAY
     Route: 048
     Dates: start: 20100224, end: 20100301
  2. DETROL LA [Suspect]
     Indication: CYSTITIS INTERSTITIAL
  3. DETROL LA [Suspect]
     Indication: BLADDER DISORDER
  4. ELMIRON [Concomitant]
     Indication: CYSTITIS INTERSTITIAL
     Dosage: 100 MG, 2X/DAY
     Route: 048
     Dates: start: 19960901, end: 20100201
  5. ELMIRON [Concomitant]
     Dosage: 100 MG, 2X/DAY
     Dates: start: 20100301
  6. PREVACID [Concomitant]
     Indication: GASTRIC PH DECREASED
     Dosage: 30 MG, 1X/DAY
     Route: 048
     Dates: start: 20050101
  7. PREVACID [Concomitant]
     Indication: REFLUX OESOPHAGITIS
  8. MAXALT [Concomitant]
     Indication: MIGRAINE
     Dosage: 10 MG, AS NEEDED
  9. CELEBREX [Concomitant]
     Indication: INFLAMMATORY PAIN
     Dosage: 200 MG, AS NEEDED, 2X/DAY
  10. ELAVIL [Concomitant]
     Indication: FIBROMYALGIA
     Dosage: 15 MG ( 1 1/2), 1X/DAY
     Route: 048
  11. TYLENOL (CAPLET) [Concomitant]
     Indication: ARTHRALGIA
     Dosage: UNK
  12. TYLENOL (CAPLET) [Concomitant]
     Indication: FIBROMYALGIA
  13. TYLENOL (CAPLET) [Concomitant]
     Indication: INTERVERTEBRAL DISC PROTRUSION
  14. ROBAXACET [Concomitant]
     Indication: ARTHRALGIA
     Dosage: UNK
  15. ROBAXACET [Concomitant]
     Indication: FIBROMYALGIA
  16. ROBAXACET [Concomitant]
     Indication: INTERVERTEBRAL DISC PROTRUSION

REACTIONS (7)
  - ABDOMINAL PAIN UPPER [None]
  - DRY MOUTH [None]
  - DYSURIA [None]
  - MICTURITION URGENCY [None]
  - NEURALGIA [None]
  - SOMNOLENCE [None]
  - URINARY RETENTION [None]
